FAERS Safety Report 19417980 (Version 1)
Quarter: 2021Q2

REPORT INFORMATION
  Report Type: Spontaneous
  Country: US (occurrence: US)
  Receive Date: 20210615
  Receipt Date: 20210615
  Transmission Date: 20210717
  Serious: No
  Sender: FDA-Public Use
  Company Number: US-PFIZER INC-2021666249

PATIENT
  Age: 52 Year
  Sex: Female

DRUGS (1)
  1. IBRANCE [Suspect]
     Active Substance: PALBOCICLIB
     Dosage: 125 MG
     Dates: start: 20210601

REACTIONS (4)
  - Fatigue [Recovering/Resolving]
  - Hot flush [Unknown]
  - Chills [Unknown]
  - Headache [Unknown]

NARRATIVE: CASE EVENT DATE: 202106
